FAERS Safety Report 6247862-3 (Version None)
Quarter: 2009Q2

REPORT INFORMATION
  Report Type: 
  Country: None (occurrence: None)
  Receive Date: 20090626
  Receipt Date: 20090618
  Transmission Date: 20091009
  Serious: Yes (Other)
  Sender: FDA-Public Use
  Company Number: US-PFIZER INC-2009229763

PATIENT
  Sex: Female
  Weight: 68.038 kg

DRUGS (12)
  1. CELEBREX [Suspect]
     Indication: SYSTEMIC LUPUS ERYTHEMATOSUS
     Dosage: FREQUENCY: 2X/DAY, EVERY DAY;
  2. PREVACID [Concomitant]
     Dosage: UNK
  3. CARBATROL [Concomitant]
     Dosage: UNK
  4. HYDROXYCHLOROQUINE [Concomitant]
     Dosage: UNK
  5. PAROXETINE [Concomitant]
     Dosage: UNK
  6. SYNTHROID [Concomitant]
     Dosage: UNK
  7. VYTORIN [Concomitant]
     Dosage: UNK
  8. CYCLOBENZAPRINE [Concomitant]
     Dosage: UNK
  9. ASPIRIN [Concomitant]
     Dosage: UNK
  10. TYLENOL (CAPLET) [Concomitant]
     Dosage: UNK
  11. PROCTOCORT [Concomitant]
     Dosage: UNK
  12. TRIAMCINOLONE [Concomitant]
     Dosage: UNK

REACTIONS (5)
  - HORMONE LEVEL ABNORMAL [None]
  - HYPERTENSION [None]
  - HYPOTHYROIDISM [None]
  - OSTEOPOROSIS [None]
  - PAIN IN EXTREMITY [None]
